FAERS Safety Report 4385699-0 (Version None)
Quarter: 2004Q2

REPORT INFORMATION
  Report Type: 
  Country: None (occurrence: None)
  Receive Date: 20040625
  Receipt Date: 20040625
  Transmission Date: 20050107
  Serious: Yes (Life-Threatening, Hospitalization)
  Sender: FDA-Public Use
  Company Number: None

PATIENT
  Sex: Male
  Weight: 70.7611 kg

DRUGS (20)
  1. BENZOCAINE SPRAY 20% BEUTLICH PHARMACEUTICALS [Suspect]
     Indication: LOCAL ANAESTHESIA
     Dosage: OEN TIME OROPHARINGEAL
     Route: 049
     Dates: start: 20040421, end: 20040421
  2. BENZOCAINE SPRAY 20% BEUTLICH PHARMACEUTICALS [Suspect]
     Indication: OESOPHAGOGASTRODUODENOSCOPY
     Dosage: OEN TIME OROPHARINGEAL
     Route: 049
     Dates: start: 20040421, end: 20040421
  3. ASPIRIN [Concomitant]
  4. FINASTERIDE [Concomitant]
  5. FOSINOPRIL SODIUM [Concomitant]
  6. HEPARIN [Concomitant]
  7. LEVOTHYROXINE SODIUM [Concomitant]
  8. METOPROLOL [Concomitant]
  9. PANTOPRAZOLE [Concomitant]
  10. TAMSULOSIN [Concomitant]
  11. ACETAMINOPHEN [Concomitant]
  12. ACETYLCYSTEINE [Concomitant]
  13. GASTROGAFFIN [Concomitant]
  14. DIPHENHYDRAMINE [Concomitant]
  15. FUROSEMIDE [Concomitant]
  16. ALBUTEROL [Concomitant]
  17. COMBIVENT [Concomitant]
  18. VICODIN [Concomitant]
  19. INSULIN REG [Concomitant]
  20. NYSTATIN [Concomitant]

REACTIONS (3)
  - ACQUIRED METHAEMOGLOBINAEMIA [None]
  - OXYGEN SATURATION DECREASED [None]
  - TACHYPNOEA [None]
